FAERS Safety Report 7516976-X (Version None)
Quarter: 2011Q2

REPORT INFORMATION
  Report Type: 
  Country: None (occurrence: None)
  Receive Date: 20110526
  Receipt Date: 20110526
  Transmission Date: 20111010
  Serious: Yes (Hospitalization)
  Sender: FDA-Public Use
  Company Number: None

PATIENT
  Sex: Male
  Weight: 70.9 kg

DRUGS (2)
  1. CISPLATIN [Suspect]
     Dosage: 469 MG
  2. ETOPOSIDE [Suspect]
     Dosage: 1758 MG

REACTIONS (1)
  - NEUTROPHIL COUNT DECREASED [None]
